FAERS Safety Report 5738590-9 (Version None)
Quarter: 2008Q2

REPORT INFORMATION
  Report Type: 
  Country: None (occurrence: None)
  Receive Date: 20080513
  Receipt Date: 20080115
  Transmission Date: 20081010
  Serious: Yes (Death)
  Sender: FDA-Public Use
  Company Number: T200800046

PATIENT
  Age: 20 Year
  Sex: Male

DRUGS (1)
  1. METHADONE HCL [Suspect]
     Dates: end: 20070501

REACTIONS (1)
  - OVERDOSE [None]
